FAERS Safety Report 10434426 (Version 1)
Quarter: 2014Q3

REPORT INFORMATION
  Report Type: Spontaneous
  Country: US (occurrence: US)
  Receive Date: 20140905
  Receipt Date: 20140905
  Transmission Date: 20150326
  Serious: Yes (Hospitalization)
  Sender: FDA-Public Use
  Company Number: US-ASTRAZENECA-2014SE64724

PATIENT
  Weight: 2.6 kg

DRUGS (19)
  1. METHADONE [Suspect]
     Active Substance: METHADONE HYDROCHLORIDE
     Route: 064
  2. QUETIAPINE [Suspect]
     Active Substance: QUETIAPINE
     Indication: ANXIETY
     Route: 064
  3. ESCITALOPRAM [Suspect]
     Active Substance: ESCITALOPRAM OXALATE
     Indication: DEPRESSION
     Route: 064
  4. QUETIAPINE [Suspect]
     Active Substance: QUETIAPINE
     Indication: DEPRESSION
     Route: 064
  5. QUETIAPINE [Suspect]
     Active Substance: QUETIAPINE
     Indication: ANXIETY
     Route: 064
  6. QUETIAPINE [Suspect]
     Active Substance: QUETIAPINE
     Indication: PSYCHOTIC DISORDER
     Route: 064
  7. ESCITALOPRAM [Suspect]
     Active Substance: ESCITALOPRAM OXALATE
     Indication: PSYCHOTIC DISORDER
     Route: 064
  8. ESCITALOPRAM [Suspect]
     Active Substance: ESCITALOPRAM OXALATE
     Indication: ANXIETY
     Route: 064
  9. BENZTROPINE [Suspect]
     Active Substance: BENZTROPINE
     Indication: SEIZURE LIKE PHENOMENA
     Route: 064
  10. GABAPENTIN. [Suspect]
     Active Substance: GABAPENTIN
     Indication: PSYCHOTIC DISORDER
     Route: 064
  11. GABAPENTIN. [Suspect]
     Active Substance: GABAPENTIN
     Indication: DEPRESSION
     Route: 064
  12. NORTRIPTYLINE [Suspect]
     Active Substance: NORTRIPTYLINE
     Indication: ANXIETY
     Route: 064
  13. GABAPENTIN. [Suspect]
     Active Substance: GABAPENTIN
     Indication: ANXIETY
     Route: 064
  14. QUETIAPINE [Suspect]
     Active Substance: QUETIAPINE
     Indication: PSYCHOTIC DISORDER
     Route: 064
  15. QUETIAPINE [Suspect]
     Active Substance: QUETIAPINE
     Indication: DEPRESSION
     Route: 064
  16. ZOPICLONE [Suspect]
     Active Substance: ZOPICLONE
     Route: 064
  17. NORTRIPTYLINE [Suspect]
     Active Substance: NORTRIPTYLINE
     Indication: PSYCHOTIC DISORDER
     Route: 064
  18. NORTRIPTYLINE [Suspect]
     Active Substance: NORTRIPTYLINE
     Indication: DEPRESSION
     Route: 064
  19. RABEPRAZOLE [Suspect]
     Active Substance: RABEPRAZOLE
     Route: 064

REACTIONS (4)
  - Tachypnoea [Unknown]
  - Trismus [Recovered/Resolved]
  - Hypotonia [Recovered/Resolved]
  - Thrombocytopenia [Unknown]
